FAERS Safety Report 19854324 (Version 3)
Quarter: 2021Q4

REPORT INFORMATION
  Report Type: Report from Study
  Country: ES (occurrence: None)
  Receive Date: 20210920
  Receipt Date: 20211214
  Transmission Date: 20220304
  Serious: Yes (Death)
  Sender: FDA-Public Use
  Company Number: ES-ROCHE-2911706

PATIENT

DRUGS (33)
  1. TOCILIZUMAB [Suspect]
     Active Substance: TOCILIZUMAB
     Indication: COVID-19
     Dosage: TOTAL DOSE 400 MG
     Route: 042
     Dates: start: 20200401
  2. TOCILIZUMAB [Suspect]
     Active Substance: TOCILIZUMAB
     Indication: Cytokine storm
  3. MIDAZOLAM [Concomitant]
     Active Substance: MIDAZOLAM
     Indication: Sedative therapy
     Dates: start: 20200425, end: 20200502
  4. KETAMINE [Concomitant]
     Active Substance: KETAMINE
     Indication: Sedation
     Dates: start: 20200429, end: 20200502
  5. INSULIN NOS [Concomitant]
     Active Substance: INSULIN NOS
     Indication: Hyperglycaemia
     Dates: start: 20200424, end: 20200502
  6. FENTANYL [Concomitant]
     Active Substance: FENTANYL
     Indication: Sedation
     Dates: start: 20200425, end: 20200502
  7. NOREPINEPHRINE [Concomitant]
     Active Substance: NOREPINEPHRINE
     Indication: Hypotension
     Dates: start: 20200425, end: 20200502
  8. CISATRACURIUM [Concomitant]
     Active Substance: CISATRACURIUM
     Indication: Hypotonia
     Dates: start: 20200429, end: 20200502
  9. ACETAMINOPHEN [Concomitant]
     Active Substance: ACETAMINOPHEN
     Indication: COVID-19
     Dates: start: 20200417, end: 20200502
  10. CEFTRIAXONE [Concomitant]
     Active Substance: CEFTRIAXONE
     Indication: Pneumonia
     Dates: start: 20200417, end: 20200425
  11. DAPTOMYCIN [Concomitant]
     Active Substance: DAPTOMYCIN
     Dates: start: 20200430, end: 20200502
  12. LINEZOLID [Concomitant]
     Active Substance: LINEZOLID
     Indication: Pneumonia
     Dates: start: 20200419, end: 20200430
  13. MEROPENEM [Concomitant]
     Active Substance: MEROPENEM
     Indication: Pneumonia
     Dates: start: 20200425, end: 20200502
  14. ENOXAPARIN [Concomitant]
     Active Substance: ENOXAPARIN
     Indication: Thrombosis prophylaxis
     Dates: start: 20200417, end: 20200502
  15. VORICONAZOLE [Concomitant]
     Active Substance: VORICONAZOLE
     Indication: Pneumonia fungal
     Dates: start: 20200501, end: 20200502
  16. HYDROXYCHLOROQUINE [Concomitant]
     Active Substance: HYDROXYCHLOROQUINE
     Indication: COVID-19
     Dates: start: 20200425, end: 20200428
  17. LOPINAVIR\RITONAVIR [Concomitant]
     Active Substance: LOPINAVIR\RITONAVIR
     Indication: COVID-19
     Dates: start: 20200417, end: 20200425
  18. OMEPRAZOLE [Concomitant]
     Active Substance: OMEPRAZOLE
     Dates: start: 20200417, end: 20200502
  19. ACETYLCYSTEINE [Concomitant]
     Active Substance: ACETYLCYSTEINE
     Dates: start: 20200425, end: 20200502
  20. MONTELUKAST [Concomitant]
     Active Substance: MONTELUKAST SODIUM
     Indication: Chronic obstructive pulmonary disease
     Dates: start: 20200417, end: 20200502
  21. ALBUTEROL [Concomitant]
     Active Substance: ALBUTEROL
     Indication: Chronic obstructive pulmonary disease
     Dates: start: 20200417, end: 20200502
  22. IPRATROPIUM [Concomitant]
     Active Substance: IPRATROPIUM
     Indication: Chronic obstructive pulmonary disease
     Dates: start: 20200417, end: 20200502
  23. DEXAMETHASONE [Concomitant]
     Active Substance: DEXAMETHASONE
     Indication: COVID-19
     Dates: start: 20200423, end: 20200429
  24. METHYLPREDNISOLONE [Concomitant]
     Active Substance: METHYLPREDNISOLONE
     Indication: Chronic obstructive pulmonary disease
     Dates: start: 20200429, end: 20200502
  25. METHYLPREDNISOLONE [Concomitant]
     Active Substance: METHYLPREDNISOLONE
     Dates: start: 20200417, end: 20200423
  26. FUROSEMIDE [Concomitant]
     Active Substance: FUROSEMIDE
     Indication: Oedema
     Dates: start: 20200419, end: 20200502
  27. BARICITINIB [Concomitant]
     Active Substance: BARICITINIB
     Indication: COVID-19
     Dates: start: 20200425, end: 20200501
  28. POLYETHYLENE GLYCOLS [Concomitant]
     Active Substance: POLYETHYLENE GLYCOLS
     Indication: Constipation
     Dates: start: 20200428, end: 20200502
  29. CALCIUM GLUCONATE [Concomitant]
     Active Substance: CALCIUM GLUCONATE
     Indication: Hypocalcaemia
     Dates: start: 20200501, end: 20200502
  30. METAMIZOLE [Concomitant]
     Active Substance: METAMIZOLE
     Indication: COVID-19
     Dates: start: 20200501, end: 20200502
  31. THIAMINE [Concomitant]
     Active Substance: THIAMINE
     Dates: start: 20200428, end: 20200502
  32. TIOTROPIUM [Concomitant]
     Active Substance: TIOTROPIUM
     Indication: Chronic obstructive pulmonary disease
     Dates: start: 20200417, end: 20200424
  33. PRAMIPEXOLE [Concomitant]
     Active Substance: PRAMIPEXOLE
     Indication: Restless legs syndrome
     Dates: start: 20200417, end: 20200424

REACTIONS (2)
  - Respiratory failure [Fatal]
  - Pneumonia fungal [Fatal]

NARRATIVE: CASE EVENT DATE: 20200501
